FAERS Safety Report 10361144 (Version 1)
Quarter: 2014Q3

REPORT INFORMATION
  Report Type: Spontaneous
  Country: US (occurrence: US)
  Receive Date: 20140804
  Receipt Date: 20140804
  Transmission Date: 20150326
  Serious: Yes (Other)
  Sender: FDA-Public Use
  Company Number: US-MYLANLABS-2014S1017621

PATIENT

DRUGS (10)
  1. FAMOTIDINE. [Concomitant]
     Active Substance: FAMOTIDINE
     Dosage: UNK
     Route: 065
  2. MIRTAZAPINE. [Concomitant]
     Active Substance: MIRTAZAPINE
     Dosage: UNK
     Route: 065
  3. BUDESONIDE. [Interacting]
     Active Substance: BUDESONIDE
     Indication: CROHN^S DISEASE
     Dosage: UNK
     Route: 048
  4. VORICONAZOLE. [Suspect]
     Active Substance: VORICONAZOLE
     Indication: OESOPHAGEAL CANDIDIASIS
     Dosage: 200 MG,BID
     Route: 048
  5. LOSARTAN [Concomitant]
     Active Substance: LOSARTAN
     Dosage: UNK
     Route: 065
  6. CALCIUM CARBONATE. [Concomitant]
     Active Substance: CALCIUM CARBONATE
     Dosage: UNK
     Route: 065
  7. SODIUM CITRATE [Concomitant]
     Active Substance: SODIUM CITRATE
     Dosage: UNK
     Route: 065
  8. CITRIC ACID [Concomitant]
     Active Substance: CITRIC ACID MONOHYDRATE
     Dosage: UNK
     Route: 065
  9. NYSTATIN. [Concomitant]
     Active Substance: NYSTATIN
     Indication: OESOPHAGEAL CANDIDIASIS
     Dosage: UNK
     Route: 048
  10. HYDROCODONE BITARTRATE WITH ACETAMINOPHEN [Concomitant]
     Active Substance: ACETAMINOPHEN\HYDROCODONE BITARTRATE
     Dosage: UNK
     Route: 065

REACTIONS (4)
  - Cushing^s syndrome [Recovering/Resolving]
  - Renal impairment [None]
  - Drug interaction [Recovering/Resolving]
  - Blood pressure increased [None]
